FAERS Safety Report 24683555 (Version 1)
Quarter: 2024Q4

REPORT INFORMATION
  Report Type: Spontaneous
  Country: US (occurrence: US)
  Receive Date: 20241201
  Receipt Date: 20241201
  Transmission Date: 20250114
  Serious: Yes (Hospitalization, Other)
  Sender: INSUD PHARMA
  Company Number: US-INSUD PHARMA-2411US09078

PATIENT

DRUGS (1)
  1. OMEPRAZOLE [Suspect]
     Active Substance: OMEPRAZOLE
     Indication: Oesophageal motility disorder
     Dosage: UNK
     Route: 065

REACTIONS (9)
  - C3 glomerulopathy [Unknown]
  - Orthostatic hypotension [Unknown]
  - Polyuria [Unknown]
  - Glycosuria [Unknown]
  - Tubulointerstitial nephritis [Unknown]
  - Acute kidney injury [Unknown]
  - Rash macular [Unknown]
  - Oral purpura [Unknown]
  - Proteinuria [Unknown]
